FAERS Safety Report 6735655-X (Version None)
Quarter: 2010Q2

REPORT INFORMATION
  Report Type: 
  Country: None (occurrence: None)
  Receive Date: 20100521
  Receipt Date: 20100510
  Transmission Date: 20101027
  Serious: Yes (Other)
  Sender: FDA-Public Use
  Company Number: PHHY2010JP29845

PATIENT
  Age: 68 Year
  Sex: Male

DRUGS (1)
  1. RASILEZ [Suspect]
     Dosage: UNK
     Route: 048

REACTIONS (2)
  - ACIDOSIS [None]
  - BLOOD URIC ACID INCREASED [None]
